FAERS Safety Report 10701740 (Version 2)
Quarter: 2015Q1

REPORT INFORMATION
  Report Type: Spontaneous
  Country: GB (occurrence: GB)
  Receive Date: 20150109
  Receipt Date: 20150114
  Transmission Date: 20150721
  Serious: Yes (Hospitalization)
  Sender: FDA-Public Use
  Company Number: GB-ELI_LILLY_AND_COMPANY-GB201501001741

PATIENT
  Age: 68 Year
  Sex: Female

DRUGS (5)
  1. FORSTEO [Suspect]
     Active Substance: TERIPARATIDE
     Indication: FOOT OPERATION
     Dosage: 20 UG, QD
     Route: 065
     Dates: start: 201310
  2. ZOTON [Concomitant]
     Active Substance: LANSOPRAZOLE
     Indication: PRODUCT USED FOR UNKNOWN INDICATION
     Route: 065
  3. FORSTEO [Suspect]
     Active Substance: TERIPARATIDE
     Indication: PROPHYLAXIS
     Dosage: 20 UG, QD
     Route: 065
     Dates: start: 20141218
  4. METHOTREXATE [Concomitant]
     Active Substance: METHOTREXATE
     Indication: RHEUMATOID ARTHRITIS
     Route: 065
  5. ADCAL D3 [Concomitant]
     Active Substance: CALCIUM CARBONATE\CHOLECALCIFEROL
     Indication: PRODUCT USED FOR UNKNOWN INDICATION
     Route: 065

REACTIONS (16)
  - Platelet count decreased [Unknown]
  - Red blood cell count decreased [Unknown]
  - Tibia fracture [Unknown]
  - Pain [Not Recovered/Not Resolved]
  - Back pain [Not Recovered/Not Resolved]
  - Insomnia [Not Recovered/Not Resolved]
  - Dehydration [Unknown]
  - Off label use [Not Recovered/Not Resolved]
  - Micturition urgency [Not Recovered/Not Resolved]
  - Pollakiuria [Not Recovered/Not Resolved]
  - Depressed mood [Not Recovered/Not Resolved]
  - Blood alkaline phosphatase increased [Recovered/Resolved]
  - Foot fracture [Unknown]
  - Renal failure [Recovered/Resolved with Sequelae]
  - Tibia fracture [Unknown]
  - Gait disturbance [Not Recovered/Not Resolved]

NARRATIVE: CASE EVENT DATE: 201307
